FAERS Safety Report 15351760 (Version 2)
Quarter: 2019Q2

REPORT INFORMATION
  Report Type: Report from Study
  Country: US (occurrence: US)
  Receive Date: 20180905
  Receipt Date: 20190409
  Transmission Date: 20190711
  Serious: Yes (Other)
  Sender: FDA-Public Use
  Company Number: US-SA-2017SA202825

PATIENT
  Age: 22 Year
  Sex: Female

DRUGS (2)
  1. IMIGLUCERASE [Suspect]
     Active Substance: IMIGLUCERASE
     Dosage: 3200 DF, QOW
     Route: 042
     Dates: start: 20161219
  2. IMIGLUCERASE [Suspect]
     Active Substance: IMIGLUCERASE
     Indication: GAUCHER^S DISEASE
     Dosage: Q2
     Route: 042
     Dates: start: 20020318

REACTIONS (8)
  - Tonsillar hypertrophy [Unknown]
  - Trigeminal neuralgia [Recovered/Resolved]
  - Tonsillitis [Unknown]
  - Device malfunction [Recovered/Resolved]
  - Thrombosis [Recovered/Resolved]
  - Device dislocation [Recovered/Resolved]
  - Back pain [Unknown]
  - Pain [Recovered/Resolved]

NARRATIVE: CASE EVENT DATE: 20180819
